FAERS Safety Report 6972015-0 (Version None)
Quarter: 2010Q3

REPORT INFORMATION
  Report Type: 
  Country: None (occurrence: None)
  Receive Date: 20100908
  Receipt Date: 20100908
  Transmission Date: 20110219
  Serious: No
  Sender: FDA-Public Use
  Company Number: None

PATIENT
  Age: 38 Year
  Sex: Female
  Weight: 63.5036 kg

DRUGS (1)
  1. VIVITROL [Suspect]
     Indication: ALCOHOL ABUSE
     Dosage: IM  Q MONTH
     Dates: start: 20100812

REACTIONS (2)
  - CELLULITIS [None]
  - HAEMATOMA [None]
